FAERS Safety Report 23944754 (Version 1)
Quarter: 2024Q2

REPORT INFORMATION
  Report Type: Spontaneous
  Country: DE (occurrence: DE)
  Receive Date: 20240606
  Receipt Date: 20240606
  Transmission Date: 20240716
  Serious: Yes (Death, Other)
  Sender: FDA-Public Use
  Company Number: DE-AMGEN-DEUSP2024108363

PATIENT

DRUGS (2)
  1. BEVACIZUMAB [Suspect]
     Active Substance: BEVACIZUMAB
     Indication: Hepatocellular carcinoma
     Dosage: UNK
     Route: 065
  2. ATEZOLIZUMAB [Concomitant]
     Active Substance: ATEZOLIZUMAB
     Indication: Hepatocellular carcinoma
     Dosage: 1200 MILLIGRAM
     Route: 042

REACTIONS (9)
  - Death [Fatal]
  - Embolism [Unknown]
  - Hepatocellular carcinoma [Unknown]
  - Oesophageal varices haemorrhage [Unknown]
  - Portal vein thrombosis [Unknown]
  - Therapy partial responder [Unknown]
  - Varices oesophageal [Unknown]
  - Haemorrhage [Unknown]
  - Off label use [Unknown]
